FAERS Safety Report 11219968 (Version 1)
Quarter: 2015Q2

REPORT INFORMATION
  Report Type: Spontaneous
  Country: US (occurrence: None)
  Receive Date: 20150624
  Receipt Date: 20150624
  Transmission Date: 20150821
  Serious: Yes (Hospitalization)
  Sender: FDA-Public Use
  Company Number: 15AE028

PATIENT
  Sex: Male

DRUGS (1)
  1. NIGHTTIME SLEEP AID [Suspect]
     Active Substance: DIPHENHYDRAMINE HYDROCHLORIDE\DOXYLAMINE SUCCINATE
     Dosage: 12 TO 13 TABLETS

REACTIONS (1)
  - Accidental overdose [None]
